FAERS Safety Report 6832142-5 (Version None)
Quarter: 2010Q3

REPORT INFORMATION
  Report Type: 
  Country: None (occurrence: None)
  Receive Date: 20100712
  Receipt Date: 20100701
  Transmission Date: 20110219
  Serious: Yes (Hospitalization)
  Sender: FDA-Public Use
  Company Number: US-JNJFOC-20100701317

PATIENT
  Sex: Male
  Weight: 69.4 kg

DRUGS (9)
  1. REMICADE [Suspect]
     Indication: CROHN'S DISEASE
     Route: 042
  2. REMICADE [Suspect]
     Dosage: 8 DOSES ON UNSPECIFIED DATES IN YEAR PRIOR TO TREAT
     Route: 042
  3. REMICADE [Suspect]
     Route: 042
  4. IMODIUM [Suspect]
     Indication: CROHN'S DISEASE
  5. ANTISPASMODIC NOS [Suspect]
     Indication: CROHN'S DISEASE
  6. NEXIUM [Suspect]
     Indication: CROHN'S DISEASE
  7. XIFAXAN [Suspect]
     Indication: CROHN'S DISEASE
  8. CHOLESTYRAMINE [Suspect]
     Indication: CROHN'S DISEASE
  9. CIMZIA [Suspect]
     Indication: CROHN'S DISEASE

REACTIONS (1)
  - HYPOKALAEMIA [None]
